FAERS Safety Report 7601629-X (Version None)
Quarter: 2011Q2

REPORT INFORMATION
  Report Type: 
  Country: None (occurrence: None)
  Receive Date: 20110629
  Receipt Date: 20100716
  Transmission Date: 20111010
  Serious: Yes (Hospitalization)
  Sender: FDA-Public Use
  Company Number: 716262

PATIENT
  Age: 57 Year
  Sex: Female
  Weight: 57.6 kg

DRUGS (2)
  1. CLONAZEPAM [Suspect]
     Indication: PANIC ATTACK
     Dosage: 1 MG, 3 PER DAY, ORAL
     Route: 048
     Dates: start: 20110101
  2. KLONOPIN [Concomitant]

REACTIONS (2)
  - DRUG INEFFECTIVE [None]
  - PANIC ATTACK [None]
